FAERS Safety Report 17734064 (Version 1)
Quarter: 2020Q2

REPORT INFORMATION
  Report Type: Spontaneous
  Country: US (occurrence: US)
  Receive Date: 20200430
  Receipt Date: 20200430
  Transmission Date: 20200714
  Serious: Yes (Hospitalization)
  Sender: FDA-Public Use
  Company Number: None

PATIENT
  Age: 57 Year
  Sex: Male

DRUGS (13)
  1. GABAPENTIN. [Concomitant]
     Active Substance: GABAPENTIN
  2. TIMOLOL MAL [Concomitant]
  3. CEPHALEXIN. [Concomitant]
     Active Substance: CEPHALEXIN
  4. FENTANYL. [Concomitant]
     Active Substance: FENTANYL
  5. BACLOFEN. [Concomitant]
     Active Substance: BACLOFEN
  6. METHOTREXATE. [Concomitant]
     Active Substance: METHOTREXATE
  7. PREGABALIN. [Concomitant]
     Active Substance: PREGABALIN
  8. HUMIRA [Suspect]
     Active Substance: ADALIMUMAB
     Dosage: ?         DOSE: 1 PEN OTHER FREQUENCY:Q2WKS ;?
     Route: 058
     Dates: start: 20190806
  9. DIAZEPAM. [Concomitant]
     Active Substance: DIAZEPAM
  10. LATANOPROST. [Concomitant]
     Active Substance: LATANOPROST
  11. VALACYCLOVIR [Concomitant]
     Active Substance: VALACYCLOVIR HYDROCHLORIDE
  12. HYDROCO/APAP [Concomitant]
     Active Substance: ACETAMINOPHEN\HYDROCODONE
  13. OXYCODONE [Concomitant]
     Active Substance: OXYCODONE

REACTIONS (1)
  - Sepsis [None]

NARRATIVE: CASE EVENT DATE: 20191101
